FAERS Safety Report 5750306-9 (Version None)
Quarter: 2008Q2

REPORT INFORMATION
  Report Type: 
  Country: None (occurrence: None)
  Receive Date: 20080521
  Receipt Date: 20080521
  Transmission Date: 20081010
  Serious: Yes (Death, Hospitalization)
  Sender: FDA-Public Use
  Company Number: None

PATIENT
  Age: 70 Year
  Sex: Male
  Weight: 142.5 kg

DRUGS (10)
  1. PROLEUKIN [Suspect]
     Indication: METASTATIC RENAL CELL CARCINOMA
     Dosage: 600,000 IU/KG CHIRON Q8H IV BOLUS
     Route: 042
     Dates: start: 20080428, end: 20080501
  2. ACETAMINOPHEN [Concomitant]
  3. CEPHALEXIN [Concomitant]
  4. IBUROFEN [Concomitant]
  5. HYDROXYZINE [Concomitant]
  6. ONDANSETRON [Concomitant]
  7. FAMOTIDINE [Concomitant]
  8. LOPERAMIDE HCL [Concomitant]
  9. PROCHLORPERAZINE [Concomitant]
  10. CALCIUM GLUCON [Concomitant]

REACTIONS (16)
  - ACIDOSIS [None]
  - ACUTE RESPIRATORY DISTRESS SYNDROME [None]
  - ANOXIC ENCEPHALOPATHY [None]
  - ATRIAL FIBRILLATION [None]
  - BLOOD PRESSURE SYSTOLIC DECREASED [None]
  - CARDIO-RESPIRATORY ARREST [None]
  - CIRCULATORY COLLAPSE [None]
  - HEART RATE IRREGULAR [None]
  - PUPILLARY REFLEX IMPAIRED [None]
  - RENAL FAILURE ACUTE [None]
  - SHOCK [None]
  - SOMNOLENCE [None]
  - THROMBOCYTOPENIA [None]
  - TREMOR [None]
  - UNRESPONSIVE TO STIMULI [None]
  - WHITE BLOOD CELL COUNT INCREASED [None]
